FAERS Safety Report 23922173 (Version 2)
Quarter: 2025Q1

REPORT INFORMATION
  Report Type: Spontaneous
  Country: CN (occurrence: CN)
  Receive Date: 20240531
  Receipt Date: 20250116
  Transmission Date: 20250409
  Serious: Yes (Other)
  Sender: Haleon PLC
  Company Number: CN-HALEON-2178235

PATIENT
  Age: 31 Year
  Sex: Male
  Weight: 80 kg

DRUGS (3)
  1. DICLOFENAC SODIUM [Suspect]
     Active Substance: DICLOFENAC SODIUM
     Indication: Analgesic therapy
     Route: 048
     Dates: start: 20240501, end: 20240513
  2. CEFTRIAXONE SODIUM [Suspect]
     Active Substance: CEFTRIAXONE SODIUM
     Indication: Wound infection
     Dosage: ROUTE: INTRAVENOUS INFUSION
     Route: 042
     Dates: start: 20240501, end: 20240510
  3. SODIUM CHLORIDE [Suspect]
     Active Substance: SODIUM CHLORIDE
     Indication: Limb injury
     Dosage: ROUTE: INTRAVENOUS INFUSION
     Route: 042
     Dates: start: 20240501, end: 20240510

REACTIONS (4)
  - Hepatic enzyme increased [Recovering/Resolving]
  - Erythema [Recovering/Resolving]
  - Swelling [Recovering/Resolving]
  - Wound complication [Recovering/Resolving]

NARRATIVE: CASE EVENT DATE: 20240505
